FAERS Safety Report 7591393-5 (Version None)
Quarter: 2011Q3

REPORT INFORMATION
  Report Type: 
  Country: None (occurrence: None)
  Receive Date: 20110706
  Receipt Date: 20110623
  Transmission Date: 20111222
  Serious: Yes (Life-Threatening, Other)
  Sender: FDA-Public Use
  Company Number: KR-AMGEN-KORSP2011028585

PATIENT
  Age: 76 Year
  Sex: Male

DRUGS (4)
  1. NESPO [Suspect]
     Dosage: UNCERTAINTY
     Route: 058
     Dates: start: 20100426, end: 20100615
  2. NESPO [Suspect]
     Indication: PRODUCT USED FOR UNKNOWN INDICATION
     Route: 058
     Dates: start: 20100426, end: 20100615
  3. ESPO [Suspect]
     Indication: PRODUCT USED FOR UNKNOWN INDICATION
     Route: 058
     Dates: start: 20110301, end: 20110331
  4. ESPO [Suspect]
     Dosage: UNCERTAINTY
     Route: 058
     Dates: start: 20110301, end: 20110331

REACTIONS (1)
  - APLASIA PURE RED CELL [None]
